FAERS Safety Report 5609635-1 (Version None)
Quarter: 2008Q1

REPORT INFORMATION
  Report Type: 
  Country: None (occurrence: None)
  Receive Date: 20080131
  Receipt Date: 20080124
  Transmission Date: 20080703
  Serious: Yes (Hospitalization)
  Sender: FDA-Public Use
  Company Number: A0706699A

PATIENT
  Sex: Female

DRUGS (4)
  1. PAXIL [Suspect]
     Indication: DRUG USE FOR UNKNOWN INDICATION
     Dosage: 20MGD PER DAY
     Route: 048
     Dates: end: 20080101
  2. LITHIUM CARBONATE [Suspect]
     Indication: DRUG USE FOR UNKNOWN INDICATION
     Route: 048
  3. DEPAKOTE [Suspect]
     Indication: DRUG USE FOR UNKNOWN INDICATION
     Route: 048
  4. PSYCHOTROPIC MEDICATIONS [Suspect]

REACTIONS (5)
  - AGGRESSION [None]
  - MEDICATION ERROR [None]
  - STRESS [None]
  - TENSION [None]
  - WITHDRAWAL SYNDROME [None]
